FAERS Safety Report 10646720 (Version 4)
Quarter: 2015Q2

REPORT INFORMATION
  Report Type: Spontaneous
  Country: US (occurrence: US)
  Receive Date: 20141211
  Receipt Date: 20150421
  Transmission Date: 20150821
  Serious: Yes (Death, Hospitalization)
  Sender: FDA-Public Use
  Company Number: US-PFIZER INC-2014338107

PATIENT
  Age: 79 Year
  Sex: Male

DRUGS (2)
  1. SUTENT [Suspect]
     Active Substance: SUNITINIB MALATE
     Indication: RENAL CANCER METASTATIC
     Dosage: 25 MG, DAILY
     Dates: start: 20140717
  2. SUTENT [Suspect]
     Active Substance: SUNITINIB MALATE
     Dosage: 12.5 MG, DAILY
     Dates: end: 20141203

REACTIONS (7)
  - Gait disturbance [Unknown]
  - Speech disorder [Unknown]
  - Walking aid user [Unknown]
  - Decreased appetite [Unknown]
  - Pneumonia [Fatal]
  - Asthenia [Unknown]
  - Impaired driving ability [Unknown]

NARRATIVE: CASE EVENT DATE: 20140717
